FAERS Safety Report 24141865 (Version 5)
Quarter: 2025Q4

REPORT INFORMATION
  Report Type: Report from Study
  Country: CA (occurrence: CA)
  Receive Date: 20240726
  Receipt Date: 20251009
  Transmission Date: 20260118
  Serious: Yes (Other)
  Sender: SAMSUNG BIOEPIS
  Company Number: CA-SAMSUNG BIOEPIS-SB-2022-17386

PATIENT
  Age: 75 Year
  Sex: Female

DRUGS (3)
  1. RENFLEXIS [Suspect]
     Active Substance: INFLIXIMAB-ABDA
     Indication: Crohn^s disease
     Dates: start: 20191114
  2. RENFLEXIS [Suspect]
     Active Substance: INFLIXIMAB-ABDA
     Dates: start: 20191114
  3. RENFLEXIS [Suspect]
     Active Substance: INFLIXIMAB-ABDA
     Route: 042
     Dates: start: 20191108

REACTIONS (10)
  - Nephrolithiasis [Unknown]
  - Renal cancer [Not Recovered/Not Resolved]
  - Bladder cancer [Unknown]
  - Haematuria [Not Recovered/Not Resolved]
  - Flank pain [Unknown]
  - Urinary tract infection [Recovered/Resolved]
  - Weight bearing difficulty [Unknown]
  - Swelling [Not Recovered/Not Resolved]
  - Fatigue [Unknown]
  - Off label use [Unknown]

NARRATIVE: CASE EVENT DATE: 20220711
